FAERS Safety Report 7795501-2 (Version None)
Quarter: 2011Q4

REPORT INFORMATION
  Report Type: 
  Country: None (occurrence: None)
  Receive Date: 20111004
  Receipt Date: 20110921
  Transmission Date: 20120403
  Serious: Yes (Hospitalization)
  Sender: FDA-Public Use
  Company Number: US-ELI_LILLY_AND_COMPANY-US201010000849

PATIENT
  Sex: Female

DRUGS (16)
  1. FORTEO [Suspect]
     Dosage: 20 UG, QD
     Route: 065
  2. LYRICA [Concomitant]
     Dosage: 225 MG, BID
  3. HYDROXYZINE [Concomitant]
     Dosage: 25 MG, PRN
  4. HYOSCYAMINE [Concomitant]
     Indication: ABDOMINAL PAIN UPPER
     Dosage: 0.012 MG, PRN
  5. ESTRADIOL [Concomitant]
     Dosage: 2 MG, UNK
  6. FORTEO [Suspect]
     Indication: OSTEOPOROSIS
     Dosage: 20 UG, DAILY (1/D)
     Route: 065
     Dates: start: 20100901
  7. CARISOPRODOL [Concomitant]
     Dosage: 350 MG, BID
  8. LORAZEPAM [Concomitant]
     Dosage: 1 MG, PRN
  9. ALLERGY MEDICATION [Concomitant]
     Indication: MULTIPLE ALLERGIES
     Dates: start: 20070101
  10. OMEPRAZOLE [Concomitant]
     Dosage: 20 MG, QD
  11. IRON [Concomitant]
  12. FORTEO [Suspect]
     Dosage: 20 UG, QD
     Route: 065
  13. COLACE [Concomitant]
     Dosage: 100 MG, PRN
  14. CYMBALTA [Concomitant]
     Dosage: 60 MG, QD
  15. TREXIMET [Concomitant]
     Indication: MIGRAINE
     Dosage: 8500 MG, UNK
  16. ACETAMINOPHEN AND HYDROCODONE BITARTRATE [Concomitant]

REACTIONS (10)
  - URINE OUTPUT DECREASED [None]
  - URTICARIA [None]
  - PAIN IN EXTREMITY [None]
  - INJECTION SITE SWELLING [None]
  - INJECTION SITE HAEMATOMA [None]
  - DERMATITIS CONTACT [None]
  - INJECTION SITE URTICARIA [None]
  - MALAISE [None]
  - NEPHROLITHIASIS [None]
  - RASH [None]
